FAERS Safety Report 26015622 (Version 1)
Quarter: 2025Q4

REPORT INFORMATION
  Report Type: Spontaneous
  Country: US (occurrence: US)
  Receive Date: 20251109
  Receipt Date: 20251109
  Transmission Date: 20260118
  Serious: Yes (Hospitalization)
  Sender: PRINSTON PHARMACEUTICAL
  Company Number: US-PRINSTON PHARMACEUTICAL INC.-2025PRN00357

PATIENT
  Age: 30 Year
  Sex: Female

DRUGS (2)
  1. QUETIAPINE [Suspect]
     Active Substance: QUETIAPINE
  2. LORAZEPAM [Suspect]
     Active Substance: LORAZEPAM

REACTIONS (2)
  - Status epilepticus [Recovered/Resolved]
  - Overdose [Recovered/Resolved]
